FAERS Safety Report 9189106 (Version 1)
Quarter: 2013Q1

REPORT INFORMATION
  Report Type: Spontaneous
  Country: US (occurrence: US)
  Receive Date: 20130326
  Receipt Date: 20130326
  Transmission Date: 20140127
  Serious: No
  Sender: FDA-Public Use
  Company Number: US-BIOGENIDEC-2013BI026926

PATIENT
  Sex: Male

DRUGS (20)
  1. TYSABRI [Suspect]
     Indication: MULTIPLE SCLEROSIS
     Route: 042
     Dates: start: 20111018
  2. AVONEX [Concomitant]
     Indication: MULTIPLE SCLEROSIS
     Route: 030
     Dates: start: 20080702
  3. CYMBALTA [Concomitant]
     Route: 048
  4. ADDERALL [Concomitant]
     Route: 048
  5. ASPIRIN [Concomitant]
     Route: 048
  6. BACLOFEN [Concomitant]
     Route: 048
  7. CALCIUM CITRATE [Concomitant]
  8. FLEXERIL [Concomitant]
     Route: 048
  9. GABAPENTIN [Concomitant]
     Route: 048
  10. IBUPROFEN [Concomitant]
     Route: 048
  11. IMODIUM [Concomitant]
     Route: 048
  12. KLOR CON [Concomitant]
     Route: 048
  13. LASIX [Concomitant]
     Route: 048
  14. METOPROLOL [Concomitant]
     Route: 048
  15. MIRAPEX [Concomitant]
     Route: 048
  16. NEXIUM [Concomitant]
     Route: 048
  17. PERCOCET [Concomitant]
     Route: 048
  18. VITAMIN B12 [Concomitant]
  19. VITAMIN D2 [Concomitant]
  20. VITAMIN D3 [Concomitant]

REACTIONS (10)
  - Gait disturbance [Unknown]
  - Bladder dysfunction [Unknown]
  - Pain [Unknown]
  - Hemiparesis [Unknown]
  - Hypoaesthesia [Unknown]
  - Disturbance in attention [Unknown]
  - Peroneal nerve palsy [Unknown]
  - Headache [Unknown]
  - Fatigue [Unknown]
  - Drug ineffective [Unknown]
